FAERS Safety Report 6956565-9 (Version None)
Quarter: 2010Q3

REPORT INFORMATION
  Report Type: 
  Country: None (occurrence: None)
  Receive Date: 20100830
  Receipt Date: 20100818
  Transmission Date: 20110219
  Serious: Yes (Other)
  Sender: FDA-Public Use
  Company Number: US-PFIZER INC-2010104845

PATIENT
  Sex: Male
  Weight: 74.83 kg

DRUGS (1)
  1. NEURONTIN [Suspect]
     Indication: NEURALGIA
     Dosage: UNK
     Dates: start: 19980101

REACTIONS (10)
  - ARTHRALGIA [None]
  - CONDITION AGGRAVATED [None]
  - DRUG INEFFECTIVE [None]
  - FEELING ABNORMAL [None]
  - HEADACHE [None]
  - MEMORY IMPAIRMENT [None]
  - MUSCLE DISORDER [None]
  - NAUSEA [None]
  - NERVE INJURY [None]
  - TREMOR [None]
